FAERS Safety Report 10977637 (Version 1)
Quarter: 2015Q1

REPORT INFORMATION
  Report Type: Spontaneous
  Country: KR (occurrence: None)
  Receive Date: 20150330
  Receipt Date: 20150330
  Transmission Date: 20150721
  Serious: Yes (Other)
  Sender: FDA-Public Use
  Company Number: 2015AKN00163

PATIENT
  Age: 68 Year
  Sex: Female

DRUGS (4)
  1. ISONIAZID (ISONIAZID) [Suspect]
     Active Substance: ISONIAZID
     Indication: TUBERCULOSIS
  2. PYRAZINAMIDE. [Concomitant]
     Active Substance: PYRAZINAMIDE
  3. ETHAMBUTOL [Concomitant]
     Active Substance: ETHAMBUTOL HYDROCHLORIDE
  4. RIFAMPIN (RIFAMPIN) UNKNOWN [Suspect]
     Active Substance: RIFAMPIN
     Indication: TUBERCULOSIS

REACTIONS (7)
  - Hepatitis toxic [None]
  - Weight decreased [None]
  - Glomerulonephritis minimal lesion [None]
  - Asthenia [None]
  - Oedema [None]
  - Nausea [None]
  - Vomiting [None]
